FAERS Safety Report 7672333-7 (Version None)
Quarter: 2011Q3

REPORT INFORMATION
  Report Type: 
  Country: None (occurrence: None)
  Receive Date: 20110809
  Receipt Date: 20110802
  Transmission Date: 20111222
  Serious: Yes (Hospitalization)
  Sender: FDA-Public Use
  Company Number: JP-PFIZER INC-2011145704

PATIENT
  Age: 61 Year
  Sex: Male
  Weight: 57 kg

DRUGS (4)
  1. ZYVOX [Suspect]
     Indication: STAPHYLOCOCCAL INFECTION
     Dosage: 1200 MG, 1X/DAY
     Route: 041
     Dates: start: 20110530, end: 20110611
  2. TARGOCID [Concomitant]
     Dosage: 400 MG, 1X/DAY
     Dates: start: 20110525, end: 20110529
  3. CLINDAMYCIN [Concomitant]
     Dosage: 1.2 G, 1X/DAY
     Dates: start: 20110523, end: 20110524
  4. CEFAZOLIN [Concomitant]
     Dosage: 4 G, 1X/DAY
     Dates: start: 20110520, end: 20110522

REACTIONS (3)
  - IRRITABILITY [None]
  - LYMPHADENITIS [None]
  - PYREXIA [None]
